FAERS Safety Report 8725121 (Version 2)
Quarter: 2012Q4

REPORT INFORMATION
  Report Type: 
  Country: US (occurrence: US)
  Receive Date: 20120815
  Receipt Date: 20120829
  Transmission Date: 20130627
  Serious: Yes (Hospitalization, Congenital Anomaly)
  Sender: FDA-Public Use
  Company Number: US-GLAXOSMITHKLINE-A0989565A

PATIENT
  Sex: Male

DRUGS (6)
  1. PAXIL [Suspect]
     Route: 064
  2. PRINIVIL [Concomitant]
  3. DEPAKOTE [Concomitant]
  4. BIAXIN [Concomitant]
  5. AUGMENTIN [Concomitant]
  6. PHENERGAN [Concomitant]

REACTIONS (8)
  - Congenital cardiovascular anomaly [Unknown]
  - Interruption of aortic arch [Unknown]
  - Coarctation of the aorta [Unknown]
  - Tricuspid valve incompetence [Unknown]
  - Premature baby [Unknown]
  - Pulmonary valve incompetence [Unknown]
  - Right ventricular failure [Unknown]
  - Foetal exposure during pregnancy [Unknown]
